FAERS Safety Report 12875599 (Version 1)
Quarter: 2016Q4

REPORT INFORMATION
  Report Type: Spontaneous
  Country: US (occurrence: US)
  Receive Date: 20161024
  Receipt Date: 20161024
  Transmission Date: 20170207
  Serious: Yes (Other)
  Sender: FDA-Public Use
  Company Number: US-ACCORD-044978

PATIENT
  Age: 56 Year
  Sex: Female

DRUGS (2)
  1. SERTRALINE [Suspect]
     Active Substance: SERTRALINE HYDROCHLORIDE
     Indication: DEPRESSION
  2. BUPROPION/BUPROPION HYDROCHLORIDE [Concomitant]
     Indication: DEPRESSION

REACTIONS (1)
  - Rapid eye movements sleep abnormal [Unknown]
